FAERS Safety Report 22135967 (Version 1)
Quarter: 2023Q1

REPORT INFORMATION
  Report Type: Spontaneous
  Country: CN (occurrence: CN)
  Receive Date: 20230324
  Receipt Date: 20230324
  Transmission Date: 20230417
  Serious: Yes (Other)
  Sender: FDA-Public Use
  Company Number: CN-002147023-NVSC2022CN174732

PATIENT
  Age: 75 Year
  Sex: Female

DRUGS (3)
  1. BRINZOLAMIDE [Suspect]
     Active Substance: BRINZOLAMIDE
     Indication: Angle closure glaucoma
     Dosage: 1 DRP, BID
     Route: 031
     Dates: start: 20220724, end: 20220727
  2. PREDNISOLONE ACETATE [Concomitant]
     Active Substance: PREDNISOLONE ACETATE
     Indication: Angle closure glaucoma
     Dosage: UNK
     Route: 065
     Dates: start: 20220724
  3. PILOCARPINE [Concomitant]
     Active Substance: PILOCARPINE
     Indication: Angle closure glaucoma
     Dosage: UNK
     Route: 065
     Dates: start: 20220724

REACTIONS (5)
  - Punctate keratitis [Recovering/Resolving]
  - Ocular hyperaemia [Recovering/Resolving]
  - Eye pain [Recovering/Resolving]
  - Ocular discomfort [Recovering/Resolving]
  - Conjunctival hyperaemia [Recovering/Resolving]

NARRATIVE: CASE EVENT DATE: 20220727
